FAERS Safety Report 13343179 (Version 1)
Quarter: 2017Q1

REPORT INFORMATION
  Report Type: Spontaneous
  Country: US (occurrence: US)
  Receive Date: 20170316
  Receipt Date: 20170316
  Transmission Date: 20170428
  Serious: Yes (Other)
  Sender: FDA-Public Use
  Company Number: US-ALLERGAN-1655369US

PATIENT
  Age: 72 Year
  Sex: Male

DRUGS (1)
  1. OZURDEX [Suspect]
     Active Substance: DEXAMETHASONE
     Indication: MACULAR OEDEMA
     Dosage: 0.7 MG, SINGLE
     Route: 031
     Dates: start: 20160412, end: 20160429

REACTIONS (2)
  - Device dislocation [Not Recovered/Not Resolved]
  - Corneal oedema [Recovered/Resolved]

NARRATIVE: CASE EVENT DATE: 20160427
